FAERS Safety Report 8882147 (Version 1)
Quarter: 2012Q4

REPORT INFORMATION
  Report Type: 
  Country: FR (occurrence: FR)
  Receive Date: 20121102
  Receipt Date: 20121102
  Transmission Date: 20130627
  Serious: Yes (Hospitalization)
  Sender: FDA-Public Use
  Company Number: FR-GE HEALTHCARE MEDICAL DIAGNOSTICS-VISP-NO-1210S-0495

PATIENT
  Age: 79 Year
  Sex: Female

DRUGS (5)
  1. VISIPAQUE [Suspect]
     Indication: RECTAL HAEMORRHAGE
     Dosage: dose not reported
     Route: 042
     Dates: start: 20120627, end: 20120627
  2. LASILIX [Suspect]
  3. VALSARTAN [Suspect]
  4. CIFLOX [Concomitant]
  5. FLAGYL [Concomitant]

REACTIONS (3)
  - Renal tubular necrosis [Recovered/Resolved]
  - Renal failure acute [Recovered/Resolved]
  - Blood creatinine increased [Recovered/Resolved]
